FAERS Safety Report 11982131 (Version 1)
Quarter: 2016Q1

REPORT INFORMATION
  Report Type: Spontaneous
  Country: FR (occurrence: FR)
  Receive Date: 20160201
  Receipt Date: 20160201
  Transmission Date: 20160526
  Serious: Yes (Other)
  Sender: FDA-Public Use
  Company Number: FR-PFIZER INC-2016047140

PATIENT
  Age: 42 Year
  Sex: Female

DRUGS (10)
  1. SPASFON /00934601/ [Suspect]
     Active Substance: PHLOROGLUCINOL
     Dosage: UNK
     Route: 048
     Dates: start: 20150311, end: 20150410
  2. ZOPHREN /00955301/ [Concomitant]
     Active Substance: ONDANSETRON
     Dosage: UNK
     Dates: start: 20150410, end: 20150410
  3. CORTANCYL [Concomitant]
     Active Substance: PREDNISONE
     Dosage: UNK
     Dates: start: 20150311
  4. IMOVANE [Suspect]
     Active Substance: ZOPICLONE
     Dosage: UNK
     Route: 048
     Dates: start: 20150311, end: 20150410
  5. PROGRAF [Concomitant]
     Active Substance: TACROLIMUS\TACROLIMUS ANHYDROUS
     Dosage: UNK
     Dates: start: 20150311
  6. PARACETAMOL [Suspect]
     Active Substance: ACETAMINOPHEN
     Dosage: UNK
     Route: 048
     Dates: start: 20150311, end: 20150410
  7. CELLCEPT [Concomitant]
     Active Substance: MYCOPHENOLATE MOFETIL\MYCOPHENOLATE MOFETIL HYDROCHLORIDE
     Dosage: UNK
     Dates: start: 20150311
  8. EUPANTOL [Suspect]
     Active Substance: PANTOPRAZOLE SODIUM
     Dosage: UNK
     Route: 048
     Dates: start: 20150325, end: 20150410
  9. WELLVONE [Suspect]
     Active Substance: ATOVAQUONE
     Dosage: UNK
     Route: 048
     Dates: start: 20150325, end: 20150410
  10. TEMERIT [Concomitant]
     Active Substance: NEBIVOLOL
     Dosage: UNK

REACTIONS (2)
  - Hepatitis [Recovering/Resolving]
  - Hepatitis cholestatic [Recovering/Resolving]

NARRATIVE: CASE EVENT DATE: 20150410
